FAERS Safety Report 17204510 (Version 1)
Quarter: 2019Q4

REPORT INFORMATION
  Report Type: Spontaneous
  Country: US (occurrence: US)
  Receive Date: 20191226
  Receipt Date: 20191226
  Transmission Date: 20200122
  Serious: Yes (Other)
  Sender: FDA-Public Use
  Company Number: US-JNJFOC-20191237449

PATIENT
  Age: 80 Year
  Sex: Male
  Weight: 118.95 kg

DRUGS (10)
  1. STELARA [Suspect]
     Active Substance: USTEKINUMAB
     Indication: PSORIASIS
     Route: 058
     Dates: start: 201609
  2. VITAMIN D3 [Concomitant]
     Active Substance: CHOLECALCIFEROL
     Route: 048
  3. POTASSIUM CHLORIDE. [Concomitant]
     Active Substance: POTASSIUM CHLORIDE
     Route: 048
  4. FISH OIL [Concomitant]
     Active Substance: FISH OIL
     Route: 048
  5. ASPRIN [Concomitant]
     Active Substance: ASPIRIN
     Route: 048
  6. DIOVAN [Concomitant]
     Active Substance: VALSARTAN
     Route: 048
  7. FLAXSEED OIL                       /01649403/ [Concomitant]
     Route: 048
  8. IRBESARTAN. [Concomitant]
     Active Substance: IRBESARTAN
     Route: 048
  9. ATORVASTATIN [Concomitant]
     Active Substance: ATORVASTATIN
     Route: 048
  10. FUROSEMIDE. [Concomitant]
     Active Substance: FUROSEMIDE
     Route: 048

REACTIONS (3)
  - Neovascular age-related macular degeneration [Unknown]
  - Tendonitis [Not Recovered/Not Resolved]
  - Tendon operation [Unknown]

NARRATIVE: CASE EVENT DATE: 2019
